FAERS Safety Report 25741957 (Version 1)
Quarter: 2025Q3

REPORT INFORMATION
  Report Type: Spontaneous
  Country: US (occurrence: US)
  Receive Date: 20250829
  Receipt Date: 20250829
  Transmission Date: 20251021
  Serious: No
  Sender: MILLICENT HOLDINGS
  Company Number: US-Millicent Holdings Ltd.-MILL20250275

PATIENT
  Age: 37 Year
  Sex: Female

DRUGS (4)
  1. FEMRING [Suspect]
     Active Substance: ESTRADIOL ACETATE
     Indication: Ovarian failure
     Route: 067
     Dates: start: 20250724
  2. FEMRING [Suspect]
     Active Substance: ESTRADIOL ACETATE
     Route: 067
     Dates: start: 2025
  3. PROMETRIUM [Concomitant]
     Active Substance: PROGESTERONE
     Indication: Ovarian failure
     Route: 065
  4. ESTRADIOL [Concomitant]
     Active Substance: ESTRADIOL
     Indication: Ovarian failure
     Dosage: AS DIRECTED, TWO TIMES PER WEEK
     Route: 065

REACTIONS (3)
  - Drug effect less than expected [Not Recovered/Not Resolved]
  - Hot flush [Not Recovered/Not Resolved]
  - Product use in unapproved indication [Unknown]

NARRATIVE: CASE EVENT DATE: 20250724
